FAERS Safety Report 14150242 (Version 1)
Quarter: 2017Q4

REPORT INFORMATION
  Report Type: Spontaneous
  Country: ES (occurrence: ES)
  Receive Date: 20171101
  Receipt Date: 20171101
  Transmission Date: 20180321
  Serious: Yes (Other)
  Sender: FDA-Public Use
  Company Number: ES-PFIZER INC-2017468133

PATIENT
  Age: 36 Year
  Sex: Female
  Weight: 165 kg

DRUGS (2)
  1. UROTROL NEO [Suspect]
     Active Substance: TOLTERODINE TARTRATE
     Indication: POLYURIA
     Dosage: 4 MG, 1X/DAY
     Route: 048
     Dates: start: 20170809, end: 20170813
  2. ETINILESTRADIOL / DROSPIRENONA MYLAN [Concomitant]
     Dosage: UNK (ETINILESTRADIOL / DROSPIRENONA MYLAN 0.02 MG/3 MG FILM-COATED TABLET, DOSAGE MAINTAINED)
     Route: 048

REACTIONS (2)
  - Nervousness [Recovered/Resolved]
  - Palpitations [Recovered/Resolved]

NARRATIVE: CASE EVENT DATE: 201708
